FAERS Safety Report 5713664-7 (Version None)
Quarter: 2008Q2

REPORT INFORMATION
  Report Type: 
  Country: None (occurrence: None)
  Receive Date: 20080418
  Receipt Date: 20080404
  Transmission Date: 20081010
  Serious: Yes (Hospitalization, Other)
  Sender: FDA-Public Use
  Company Number: 013533

PATIENT
  Sex: Male

DRUGS (4)
  1. PRIALT [Suspect]
     Indication: PAIN
     Dosage: SEE IMAGE
     Dates: start: 20080123
  2. OXYCODONE HCL [Concomitant]
  3. SIMVASTATIN [Concomitant]
  4. ANTIHYPERTENSIVES [Concomitant]

REACTIONS (9)
  - GAIT DISTURBANCE [None]
  - GENERAL PHYSICAL HEALTH DETERIORATION [None]
  - MYOCARDIAL INFARCTION [None]
  - MYOCARDIAL ISCHAEMIA [None]
  - RESPIRATORY FAILURE [None]
  - RHABDOMYOLYSIS [None]
  - SLEEP DISORDER [None]
  - SPEECH DISORDER [None]
  - VERTIGO [None]
